FAERS Safety Report 10428163 (Version 1)
Quarter: 2014Q3

REPORT INFORMATION
  Report Type: Spontaneous
  Country: US (occurrence: US)
  Receive Date: 20140903
  Receipt Date: 20140903
  Transmission Date: 20150326
  Serious: Yes (Hospitalization)
  Sender: FDA-Public Use
  Company Number: US-CUBIST PHARMACEUTICAL, INC.-2014CBST001205

PATIENT

DRUGS (6)
  1. ERTAPENEM [Concomitant]
     Active Substance: ERTAPENEM
     Indication: PRODUCT USED FOR UNKNOWN INDICATION
     Dosage: 1 G, QD
     Route: 042
  2. CUBICIN [Suspect]
     Active Substance: DAPTOMYCIN
     Dosage: 10.5 MG/KG, QD
     Route: 042
     Dates: start: 20140421, end: 20140430
  3. CUBICIN [Suspect]
     Active Substance: DAPTOMYCIN
     Indication: PRODUCT USED FOR UNKNOWN INDICATION
     Dosage: 550 MG, QD
     Route: 042
     Dates: start: 20140325
  4. CUBICIN [Suspect]
     Active Substance: DAPTOMYCIN
     Dosage: 10.5 MG/KG, QD
     Route: 042
     Dates: start: 20140325
  5. CUBICIN [Suspect]
     Active Substance: DAPTOMYCIN
     Dosage: 550 MG, QD
     Route: 042
     Dates: start: 20140421, end: 20140430
  6. ALTEPLASE [Concomitant]
     Active Substance: ALTEPLASE
     Indication: PRODUCT USED FOR UNKNOWN INDICATION
     Dosage: 2 MG, QD
     Route: 065

REACTIONS (2)
  - Platelet count decreased [Unknown]
  - Pyrexia [Unknown]

NARRATIVE: CASE EVENT DATE: 20140326
